FAERS Safety Report 10377051 (Version 3)
Quarter: 2014Q3

REPORT INFORMATION
  Report Type: Spontaneous
  Country: CA (occurrence: CA)
  Receive Date: 20140812
  Receipt Date: 20140915
  Transmission Date: 20150326
  Serious: Yes (Other)
  Sender: FDA-Public Use
  Company Number: CA-BEH-2014044414

PATIENT
  Age: 63 Year
  Sex: Female
  Weight: 58 kg

DRUGS (2)
  1. PRIVIGEN [Suspect]
     Active Substance: HUMAN IMMUNOGLOBULIN G
     Indication: MYOSITIS
     Dosage: 20 GM; 60 GM WEEKLY X2 STARTED AT 0.6 ML/KG/HR UP TO 7.2 ML/KG PER HOUR
     Route: 042
     Dates: start: 20140610, end: 20140610
  2. PRIVIGEN [Suspect]
     Active Substance: HUMAN IMMUNOGLOBULIN G
     Route: 042
     Dates: start: 20140603, end: 20140603

REACTIONS (11)
  - Haemoglobin decreased [Recovered/Resolved]
  - Haemolysis [Recovered/Resolved]
  - Adverse reaction [Recovered/Resolved]
  - Body temperature [Recovered/Resolved]
  - Asthenia [Recovered/Resolved]
  - Spherocytic anaemia [Recovered/Resolved]
  - Haemolysis [Recovered/Resolved]
  - Fatigue [Recovered/Resolved]
  - Anaemia [Recovered/Resolved]
  - Palpitations [Recovered/Resolved]
  - ABO incompatibility [Recovered/Resolved]

NARRATIVE: CASE EVENT DATE: 20140603
